FAERS Safety Report 7522023-6 (Version None)
Quarter: 2011Q2

REPORT INFORMATION
  Report Type: 
  Country: None (occurrence: None)
  Receive Date: 20110603
  Receipt Date: 20110530
  Transmission Date: 20111010
  Serious: Yes (Death)
  Sender: FDA-Public Use
  Company Number: PHHY2011BR46943

PATIENT
  Sex: Male
  Weight: 48 kg

DRUGS (1)
  1. FORMOTEROL FUMARATE [Suspect]
     Indication: LUNG DISORDER
     Dosage: 1 DF, QD
     Dates: start: 20100901

REACTIONS (1)
  - RESPIRATORY FAILURE [None]
